FAERS Safety Report 7575697-8 (Version None)
Quarter: 2011Q2

REPORT INFORMATION
  Report Type: 
  Country: None (occurrence: None)
  Receive Date: 20110628
  Receipt Date: 20110620
  Transmission Date: 20111010
  Serious: Yes (Other)
  Sender: FDA-Public Use
  Company Number: US-BIOGENIDEC-2011BI022998

PATIENT
  Age: 56 Year
  Sex: Female

DRUGS (4)
  1. TYSABRI [Suspect]
     Indication: MULTIPLE SCLEROSIS
     Route: 042
     Dates: start: 20100415, end: 20110120
  2. PRAZOLAM [Concomitant]
  3. DURAGESIC-100 [Concomitant]
  4. BACLOFEN [Concomitant]

REACTIONS (4)
  - OVARIAN CYST [None]
  - BENIGN OVARIAN TUMOUR [None]
  - HYPERTENSION [None]
  - CARDIAC FAILURE CONGESTIVE [None]
